FAERS Safety Report 7444362-X (Version None)
Quarter: 2011Q2

REPORT INFORMATION
  Report Type: 
  Country: None (occurrence: None)
  Receive Date: 20110419
  Receipt Date: 20110411
  Transmission Date: 20111010
  Serious: Yes (Other)
  Sender: FDA-Public Use
  Company Number: NSR_00215_2011

PATIENT
  Sex: Female

DRUGS (2)
  1. HYDROXYZINE HYDROCHLORIDE [Suspect]
     Indication: MULTIPLE ALLERGIES
     Dosage: (30 MG TID ORAL)
     Route: 048
     Dates: end: 20110328
  2. GEODON [Concomitant]

REACTIONS (6)
  - DRUG HYPERSENSITIVITY [None]
  - OROPHARYNGEAL PAIN [None]
  - DYSPNOEA [None]
  - FEELING ABNORMAL [None]
  - HEADACHE [None]
  - SCAR [None]
